FAERS Safety Report 7754192-7 (Version None)
Quarter: 2011Q3

REPORT INFORMATION
  Report Type: 
  Country: None (occurrence: None)
  Receive Date: 20110915
  Receipt Date: 20110720
  Transmission Date: 20111222
  Serious: Yes (Other)
  Sender: FDA-Public Use
  Company Number: PHHY2011NL78566

PATIENT
  Sex: Female

DRUGS (1)
  1. ZOMETA [Suspect]
     Indication: METASTASES TO LUNG
     Dosage: 4 MG / 5ML
     Route: 042
     Dates: start: 20110516, end: 20110720

REACTIONS (2)
  - TERMINAL STATE [None]
  - MALAISE [None]
